FAERS Safety Report 6550148-0 (Version None)
Quarter: 2010Q1

REPORT INFORMATION
  Report Type: 
  Country: None (occurrence: None)
  Receive Date: 20100119
  Receipt Date: 20100107
  Transmission Date: 20100710
  Serious: Yes (Hospitalization)
  Sender: FDA-Public Use
  Company Number: 2009AL003519

PATIENT
  Sex: Female

DRUGS (3)
  1. MIRTAZAPINE [Suspect]
     Indication: DEPRESSION
     Dosage: 15 MG;PO
     Route: 048
     Dates: start: 20090504, end: 20090511
  2. CYCLIZINE [Concomitant]
  3. BUSCOPAN [Concomitant]

REACTIONS (4)
  - DYSKINESIA [None]
  - NAUSEA [None]
  - RESTLESS LEGS SYNDROME [None]
  - VOMITING [None]
